FAERS Safety Report 9834685 (Version 2)
Quarter: 2014Q1

REPORT INFORMATION
  Report Type: Spontaneous
  Country: DE (occurrence: DE)
  Receive Date: 20140122
  Receipt Date: 20140203
  Transmission Date: 20141002
  Serious: Yes (Hospitalization, Other)
  Sender: FDA-Public Use
  Company Number: DE-UCBSA-108929

PATIENT
  Age: 62 Year
  Sex: Female

DRUGS (4)
  1. XUSAL [Suspect]
     Indication: PRURITUS
     Dosage: 1 IN THE EVENING
     Route: 048
     Dates: start: 20131216, end: 20131217
  2. VENLAFAXINE [Concomitant]
     Route: 048
  3. GALAFEM [Concomitant]
     Route: 048
  4. EMOVATE [Concomitant]
     Route: 062

REACTIONS (2)
  - Rash generalised [Recovering/Resolving]
  - Face oedema [Recovering/Resolving]
